FAERS Safety Report 14747396 (Version 1)
Quarter: 2018Q2

REPORT INFORMATION
  Report Type: Spontaneous
  Country: US (occurrence: US)
  Receive Date: 20180411
  Receipt Date: 20180411
  Transmission Date: 20180711
  Serious: Yes (Hospitalization)
  Sender: FDA-Public Use
  Company Number: US-PFIZER INC-2018145809

PATIENT
  Age: 72 Year
  Sex: Female
  Weight: 78 kg

DRUGS (2)
  1. IBRANCE [Suspect]
     Active Substance: PALBOCICLIB
     Indication: BREAST CANCER METASTATIC
     Dosage: UNK
  2. LETROZOLE. [Concomitant]
     Active Substance: LETROZOLE

REACTIONS (3)
  - Pancreatic carcinoma [Unknown]
  - Second primary malignancy [Unknown]
  - Weight decreased [Unknown]

NARRATIVE: CASE EVENT DATE: 201801
